FAERS Safety Report 9483111 (Version 1)
Quarter: 2013Q3

REPORT INFORMATION
  Report Type: Spontaneous
  Country: US (occurrence: US)
  Receive Date: 20130828
  Receipt Date: 20130828
  Transmission Date: 20140515
  Serious: Yes (Other)
  Sender: FDA-Public Use
  Company Number: US-AMGEN-US126329

PATIENT
  Sex: Male

DRUGS (1)
  1. ENBREL [Suspect]
     Indication: PSORIASIS
     Dosage: 25 MG, 4 TIMES/WK
     Route: 058

REACTIONS (3)
  - Nervous system disorder [Unknown]
  - Psoriasis [Unknown]
  - Condition aggravated [Unknown]
